FAERS Safety Report 6521970-1 (Version None)
Quarter: 2009Q4

REPORT INFORMATION
  Report Type: 
  Country: None (occurrence: None)
  Receive Date: 20091230
  Receipt Date: 20091223
  Transmission Date: 20100525
  Serious: Yes (Hospitalization)
  Sender: FDA-Public Use
  Company Number: NL-TEVA-218946ISR

PATIENT
  Sex: Female

DRUGS (7)
  1. SOTALOL HCL [Suspect]
     Indication: ARRHYTHMIA
     Dates: start: 20091118
  2. TELMISARTAN [Concomitant]
     Dates: start: 20090519
  3. VERAPAMIL [Concomitant]
     Dates: start: 20090919
  4. KETOPROFEN [Concomitant]
     Dates: start: 19981217
  5. OXAZEPAM [Concomitant]
     Dates: start: 20011203
  6. ROSUVASTATIN [Concomitant]
     Dates: start: 20081004
  7. ESOMEPRAZOLE MAGNESIUM [Concomitant]
     Dates: start: 20090417

REACTIONS (1)
  - MUSCLE RUPTURE [None]
